FAERS Safety Report 25394858 (Version 1)
Quarter: 2025Q2

REPORT INFORMATION
  Report Type: Report from Study
  Country: US (occurrence: US)
  Receive Date: 20250604
  Receipt Date: 20250604
  Transmission Date: 20250717
  Serious: Yes (Other)
  Sender: ABBVIE
  Company Number: US-ABBVIE-6303349

PATIENT
  Sex: Male

DRUGS (1)
  1. SKYRIZI [Suspect]
     Active Substance: RISANKIZUMAB-RZAA
     Indication: Psoriasis
     Route: 058
     Dates: start: 20240201

REACTIONS (6)
  - Cardiac pacemaker insertion [Recovered/Resolved]
  - Cardiac operation [Recovered/Resolved]
  - Liver disorder [Not Recovered/Not Resolved]
  - Weight decreased [Unknown]
  - Scleral discolouration [Unknown]
  - Illness [Unknown]
